FAERS Safety Report 18866798 (Version 1)
Quarter: 2021Q1

REPORT INFORMATION
  Report Type: Spontaneous
  Country: US (occurrence: US)
  Receive Date: 20210208
  Receipt Date: 20210208
  Transmission Date: 20210420
  Serious: Yes (Other)
  Sender: FDA-Public Use
  Company Number: None

PATIENT
  Age: 13 Year
  Sex: Male

DRUGS (1)
  1. CONCERTA GENERIC 27MG [Suspect]
     Active Substance: METHYLPHENIDATE HYDROCHLORIDE
     Dosage: 2 PI;;LLS IN AM
     Route: 048

REACTIONS (5)
  - Agitation [None]
  - Product substitution issue [None]
  - Device malfunction [None]
  - Disturbance in attention [None]
  - Therapeutic product effect incomplete [None]
